FAERS Safety Report 9815442 (Version 1)
Quarter: 2014Q1

REPORT INFORMATION
  Report Type: Spontaneous
  Country: US (occurrence: US)
  Receive Date: 20140114
  Receipt Date: 20140114
  Transmission Date: 20141002
  Serious: No
  Sender: FDA-Public Use
  Company Number: US-BAYER-2014-000453

PATIENT
  Age: 34 Year
  Sex: Female

DRUGS (1)
  1. YAZ [Suspect]
     Indication: PREMENSTRUAL DYSPHORIC DISORDER
     Dosage: UNK
     Route: 048
     Dates: start: 201309

REACTIONS (2)
  - Abnormal withdrawal bleeding [None]
  - Drug dose omission [None]
